FAERS Safety Report 6072410-0 (Version None)
Quarter: 2009Q1

REPORT INFORMATION
  Report Type: 
  Country: None (occurrence: None)
  Receive Date: 20090210
  Receipt Date: 20090203
  Transmission Date: 20090719
  Serious: Yes (Hospitalization, Other)
  Sender: FDA-Public Use
  Company Number: CH-JNJFOC-20090200466

PATIENT
  Age: 78 Year
  Sex: Male

DRUGS (14)
  1. RISPERDAL [Suspect]
     Route: 048
  2. RISPERDAL [Suspect]
     Route: 048
  3. RISPERDAL [Suspect]
     Indication: SCHIZOPHRENIA, RESIDUAL TYPE
     Route: 048
  4. AKINETON [Suspect]
     Route: 048
  5. AKINETON [Suspect]
     Indication: DRUG USE FOR UNKNOWN INDICATION
     Route: 048
  6. PRAZINE [Suspect]
     Route: 048
  7. PRAZINE [Suspect]
     Route: 048
  8. PRAZINE [Suspect]
     Indication: DRUG USE FOR UNKNOWN INDICATION
     Route: 048
  9. SERESTA [Suspect]
     Indication: DRUG USE FOR UNKNOWN INDICATION
     Route: 048
  10. TEMESTA [Suspect]
     Route: 048
  11. TEMESTA [Suspect]
     Indication: DRUG USE FOR UNKNOWN INDICATION
     Route: 048
  12. ATROVENT [Concomitant]
     Route: 065
  13. VENTOLIN [Concomitant]
     Route: 065
  14. INSULIN [Concomitant]

REACTIONS (3)
  - ATAXIA [None]
  - SEDATION [None]
  - WEIGHT DECREASED [None]
